FAERS Safety Report 5515657-1 (Version None)
Quarter: 2007Q4

REPORT INFORMATION
  Report Type: 
  Country: None (occurrence: None)
  Receive Date: 20071113
  Receipt Date: 20070731
  Transmission Date: 20080405
  Serious: No
  Sender: FDA-Public Use
  Company Number: A0667374A

PATIENT
  Age: 76 Year
  Sex: Male

DRUGS (5)
  1. COREG [Suspect]
     Indication: HYPERTENSION
     Dosage: 6.25MG TWICE PER DAY
     Route: 048
     Dates: start: 20060701, end: 20070101
  2. COREG CR [Suspect]
     Indication: HYPERTENSION
     Dosage: 20MG PER DAY
     Route: 048
     Dates: start: 20070720, end: 20070726
  3. LISINOPRIL [Concomitant]
  4. HYDROCHLOROTHIAZIDE [Concomitant]
  5. OMEGA 3 FISH OIL [Concomitant]

REACTIONS (6)
  - ALOPECIA [None]
  - BALANCE DISORDER [None]
  - DIZZINESS [None]
  - HYPOTENSION [None]
  - MALAISE [None]
  - VISION BLURRED [None]
